FAERS Safety Report 15101795 (Version 1)
Quarter: 2018Q3

REPORT INFORMATION
  Report Type: Spontaneous
  Country: DE (occurrence: DE)
  Receive Date: 20180703
  Receipt Date: 20180703
  Transmission Date: 20181010
  Serious: Yes (Other)
  Sender: FDA-Public Use
  Company Number: DE-PFIZER INC-2018263213

PATIENT
  Age: 74 Year
  Sex: Female

DRUGS (1)
  1. EXEMESTANE. [Suspect]
     Active Substance: EXEMESTANE
     Indication: BREAST CANCER
     Dosage: LAST ONE YEAR; EXEMESTANE 25 MG UTA

REACTIONS (6)
  - Paraesthesia [Recovered/Resolved]
  - Skin reaction [Recovered/Resolved]
  - Osteoporosis [Not Recovered/Not Resolved]
  - Bone fissure [Not Recovered/Not Resolved]
  - Gait disturbance [Not Recovered/Not Resolved]
  - Urticaria [Recovered/Resolved]
